FAERS Safety Report 13900521 (Version 1)
Quarter: 2017Q3

REPORT INFORMATION
  Report Type: Spontaneous
  Country: US (occurrence: None)
  Receive Date: 20170818
  Receipt Date: 20170818
  Transmission Date: 20171127
  Serious: No
  Sender: FDA-Public Use
  Company Number: None

PATIENT
  Age: 71 Month
  Sex: Male

DRUGS (1)
  1. TRANSDERM SCOP [Suspect]
     Active Substance: SCOPOLAMINE
     Dosage: (0.5 PATCH) Q72H TOPICALLY
     Route: 061

REACTIONS (2)
  - Incorrect dose administered by device [None]
  - Wrong technique in device usage process [None]

NARRATIVE: CASE EVENT DATE: 20170804
